FAERS Safety Report 4522828-X (Version None)
Quarter: 2004Q4

REPORT INFORMATION
  Report Type: 
  Country: None (occurrence: None)
  Receive Date: 20041207
  Receipt Date: 20041130
  Transmission Date: 20050328
  Serious: Yes (Life-Threatening, Hospitalization, Other)
  Sender: FDA-Public Use
  Company Number: HQWYE566222APR04

PATIENT
  Age: 56 Year
  Sex: Female

DRUGS (11)
  1. EFFEXOR XR [Suspect]
     Indication: DEPRESSION
     Dosage: ORAL; SEE IMAGE
     Route: 048
     Dates: start: 20040201, end: 20040401
  2. EFFEXOR XR [Suspect]
     Indication: SCHIZOPHRENIA
     Dosage: ORAL; SEE IMAGE
     Route: 048
     Dates: start: 20040201, end: 20040401
  3. EFFEXOR XR [Suspect]
     Indication: DEPRESSION
     Dosage: ORAL; SEE IMAGE
     Route: 048
     Dates: start: 20040401
  4. EFFEXOR XR [Suspect]
     Indication: SCHIZOPHRENIA
     Dosage: ORAL; SEE IMAGE
     Route: 048
     Dates: start: 20040401
  5. ALPRAZOLAM [Concomitant]
  6. ZYPREXA [Concomitant]
  7. NILSTAT (NYSTATIN) [Concomitant]
  8. ASPIRIN [Concomitant]
  9. ENOXAPARIN SODIUM [Concomitant]
  10. THYROXINE SODIUM (LEVOTHYROXINE SODIUM) [Concomitant]
  11. OMEPRAZOLE [Concomitant]

REACTIONS (6)
  - ANXIETY [None]
  - CARDIAC ARREST [None]
  - CIRCULATORY COLLAPSE [None]
  - HYPERVENTILATION [None]
  - HYPOPHOSPHATAEMIA [None]
  - MENTAL DISORDER [None]
